FAERS Safety Report 25644603 (Version 1)
Quarter: 2025Q3

REPORT INFORMATION
  Report Type: Spontaneous
  Country: US (occurrence: None)
  Receive Date: 20250804
  Receipt Date: 20250804
  Transmission Date: 20251021
  Serious: Yes (Other)
  Sender: FDA-CTU
  Company Number: None

PATIENT
  Age: 63 Year
  Sex: Female

DRUGS (3)
  1. TOBRAMYCIN [Suspect]
     Active Substance: TOBRAMYCIN
     Indication: Bronchiectasis
     Dosage: 300MG BID CONTINOUSLY
  2. AZITHROMYCIN [Concomitant]
     Active Substance: AZITHROMYCIN
  3. VITAMINS [Suspect]
     Active Substance: VITAMINS

REACTIONS (2)
  - Oxygen saturation decreased [None]
  - Drug interaction [None]
